FAERS Safety Report 10944832 (Version 1)
Quarter: 2015Q1

REPORT INFORMATION
  Report Type: Spontaneous
  Country: US (occurrence: None)
  Receive Date: 20150319
  Receipt Date: 20150319
  Transmission Date: 20150721
  Serious: Yes (Other)
  Sender: FDA-Public Use
  Company Number: 2032714-2015-00002

PATIENT
  Sex: Female

DRUGS (1)
  1. BRX WH THPST 4OZ 6PK DP USA SODIUM FLUORIDE 0.24% [Suspect]
     Active Substance: SODIUM FLUORIDE
     Indication: DENTAL DISORDER PROPHYLAXIS

REACTIONS (1)
  - Glossodynia [None]

NARRATIVE: CASE EVENT DATE: 20150306
